FAERS Safety Report 7112229-2 (Version None)
Quarter: 2010Q4

REPORT INFORMATION
  Report Type: 
  Country: None (occurrence: None)
  Receive Date: 20101119
  Receipt Date: 20100329
  Transmission Date: 20110411
  Serious: No
  Sender: FDA-Public Use
  Company Number: A0852401A

PATIENT
  Age: 88 Year
  Sex: Male

DRUGS (4)
  1. AVODART [Suspect]
     Dosage: 1CAP PER DAY
     Route: 048
     Dates: start: 20100101, end: 20100301
  2. BLOOD PRESSURE MEDICATION [Concomitant]
  3. ANTI-CHOLESTEROL MEDICATION [Concomitant]
  4. UNKNOWN MEDICATION [Concomitant]
     Indication: GOUT

REACTIONS (1)
  - ASTHENOPIA [None]
